FAERS Safety Report 10196820 (Version 1)
Quarter: 2014Q2

REPORT INFORMATION
  Report Type: Spontaneous
  Country: US (occurrence: US)
  Receive Date: 20140527
  Receipt Date: 20140527
  Transmission Date: 20141212
  Serious: Yes (Other)
  Sender: FDA-Public Use
  Company Number: US-PFIZER INC-2014141319

PATIENT
  Age: 69 Year
  Sex: Female
  Weight: 89.34 kg

DRUGS (7)
  1. LYRICA [Suspect]
     Indication: BACK PAIN
     Dosage: 150 MG, 2X/DAY
     Route: 048
     Dates: start: 20140506
  2. LYRICA [Suspect]
     Indication: PAIN IN EXTREMITY
  3. LYRICA [Suspect]
     Indication: MUSCLE SPASMS
  4. LYRICA [Suspect]
     Indication: MUSCLE SPASMS
  5. METOPROLOL [Concomitant]
     Dosage: 25 MG, 1X/DAY
  6. LISINOPRIL W/HYDROCHLOROTHIAZIDE [Concomitant]
     Dosage: 12.5/25 MG
  7. PAXIL [Concomitant]
     Dosage: 10 MG, 1X/DAY

REACTIONS (11)
  - Multifocal motor neuropathy [Unknown]
  - Back disorder [Unknown]
  - Somnolence [Recovered/Resolved]
  - Dizziness [Unknown]
  - Neuropathy peripheral [Unknown]
  - Hypoaesthesia [Unknown]
  - Muscular weakness [Unknown]
  - Muscle spasms [Unknown]
  - Gait disturbance [Unknown]
  - Body height decreased [Unknown]
  - Frustration [Unknown]
